FAERS Safety Report 17735128 (Version 1)
Quarter: 2020Q2

REPORT INFORMATION
  Report Type: Spontaneous
  Country: US (occurrence: US)
  Receive Date: 20200501
  Receipt Date: 20200501
  Transmission Date: 20200714
  Serious: No
  Sender: FDA-Public Use
  Company Number: US-RADIUS HEALTH INC.-2020US000938

PATIENT
  Age: 60 Year
  Sex: Female

DRUGS (2)
  1. TYMLOS [Suspect]
     Active Substance: ABALOPARATIDE
     Indication: OSTEOPOROSIS POSTMENOPAUSAL
     Dosage: 80MCG, QD
     Route: 058
     Dates: start: 20191210
  2. TYMLOS [Suspect]
     Active Substance: ABALOPARATIDE
     Dosage: 80MCG, QD
     Dates: start: 20191210

REACTIONS (10)
  - Injection site bruising [Not Recovered/Not Resolved]
  - Fatigue [Not Recovered/Not Resolved]
  - Product quality issue [Unknown]
  - Nasal congestion [Unknown]
  - Apathy [Unknown]
  - Muscle spasms [Not Recovered/Not Resolved]
  - Vision blurred [Unknown]
  - Nausea [Recovered/Resolved]
  - Back pain [Recovering/Resolving]
  - Product dose omission [Recovered/Resolved]

NARRATIVE: CASE EVENT DATE: 202001
